FAERS Safety Report 5954930-X (Version None)
Quarter: 2008Q4

REPORT INFORMATION
  Report Type: 
  Country: None (occurrence: None)
  Receive Date: 20081117
  Receipt Date: 20081015
  Transmission Date: 20090506
  Serious: No
  Sender: FDA-Public Use
  Company Number: US-BAYER-200836320NA

PATIENT
  Sex: Female

DRUGS (2)
  1. OCELLA TABLETS [Suspect]
     Indication: ORAL CONTRACEPTION
     Route: 048
     Dates: start: 20080901
  2. ZOLOFT [Concomitant]

REACTIONS (1)
  - MENSTRUATION DELAYED [None]
